FAERS Safety Report 15098281 (Version 1)
Quarter: 2018Q3

REPORT INFORMATION
  Report Type: Spontaneous
  Country: US (occurrence: US)
  Receive Date: 20180702
  Receipt Date: 20180702
  Transmission Date: 20181010
  Serious: Yes (Hospitalization)
  Sender: FDA-Public Use
  Company Number: PHHY2018US030344

PATIENT
  Age: 86 Year
  Sex: Male

DRUGS (1)
  1. TIMOLOL. [Suspect]
     Active Substance: TIMOLOL
     Indication: OPEN ANGLE GLAUCOMA
     Dosage: 1 DRP, BID
     Route: 047

REACTIONS (5)
  - Chest pain [Recovered/Resolved]
  - Fatigue [Recovering/Resolving]
  - Pyrexia [Recovered/Resolved]
  - Systemic lupus erythematosus [Recovering/Resolving]
  - Weight decreased [Recovering/Resolving]
